FAERS Safety Report 6193402-7 (Version None)
Quarter: 2009Q2

REPORT INFORMATION
  Report Type: 
  Country: None (occurrence: None)
  Receive Date: 20090518
  Receipt Date: 20080514
  Transmission Date: 20091009
  Serious: No
  Sender: FDA-Public Use
  Company Number: US-ABBOTT-08P-163-0451714-00

PATIENT
  Sex: Female
  Weight: 56.75 kg

DRUGS (1)
  1. AZMACORT [Suspect]
     Indication: ASTHMA
     Route: 055
     Dates: start: 20050101

REACTIONS (2)
  - ASTHMA [None]
  - UNDERDOSE [None]
